FAERS Safety Report 4960375-1 (Version None)
Quarter: 2006Q1

REPORT INFORMATION
  Report Type: 
  Country: None (occurrence: None)
  Receive Date: 20060329
  Receipt Date: 20060316
  Transmission Date: 20060701
  Serious: Yes (Life-Threatening, Hospitalization)
  Sender: FDA-Public Use
  Company Number: ENT 2006-0028

PATIENT
  Age: 67 Year
  Sex: Male

DRUGS (4)
  1. COMTESS (ENTACAPONE) [Suspect]
     Dosage: 600 MG (200 MG, 3 IN 1 D)
     Route: 048
     Dates: start: 20060208
  2. NACOM RETARD [Suspect]
     Indication: PARKINSON'S DISEASE
     Dosage: 300 MG (100 MG, 3 IN 1 D)
     Route: 048
     Dates: start: 19991001
  3. SIFROL [Suspect]
     Dosage: 1.05 MG (0.35 MG, 3 IN 1 D)
     Route: 048
     Dates: start: 20010301
  4. STALEVO 100 [Suspect]

REACTIONS (1)
  - MALIGNANT MELANOMA [None]
